FAERS Safety Report 9167699 (Version 1)
Quarter: 2013Q1

REPORT INFORMATION
  Report Type: Spontaneous
  Country: CN (occurrence: None)
  Receive Date: 20130307
  Receipt Date: 20130307
  Transmission Date: 20140127
  Serious: Yes (Other)
  Sender: FDA-Public Use
  Company Number: VAL_01452_2013

PATIENT
  Age: 69 Year
  Sex: Female
  Weight: 58 kg

DRUGS (5)
  1. LOTENSIN [Suspect]
     Dosage: (10 MG QD ORAL)
     Route: 048
     Dates: start: 20110703, end: 20110720
  2. HYDROCHLOROTHIAZIDE [Suspect]
     Dosage: (DF)
     Dates: start: 20110703
  3. NITRENDIPINE [Suspect]
     Dosage: (DF)
     Dates: start: 20110703
  4. CAPTOPRIL [Suspect]
     Dosage: (DF)
     Dates: start: 20110703, end: 20110721
  5. SPIRONOLACTONE (SPIRONOLACTONE) [Suspect]
     Dosage: (DF)
     Dates: start: 20110703

REACTIONS (6)
  - Cerebellar haematoma [None]
  - Hypertension [None]
  - Heart rate increased [None]
  - Respiratory rate increased [None]
  - Loss of consciousness [None]
  - Blood potassium decreased [None]
